FAERS Safety Report 20225596 (Version 8)
Quarter: 2024Q4

REPORT INFORMATION
  Report Type: Report from Study
  Country: US (occurrence: US)
  Receive Date: 20211224
  Receipt Date: 20241014
  Transmission Date: 20250115
  Serious: Yes (Hospitalization, Other)
  Sender: NOVARTIS
  Company Number: US-NOVARTISTESTPH-NVSC2021US294892

PATIENT
  Sex: Female
  Weight: 147 kg

DRUGS (2)
  1. ENTRESTO [Suspect]
     Active Substance: SACUBITRIL\VALSARTAN
     Indication: Cardiac failure
     Dosage: 1 DOSAGE FORM, BID (24/26 MG)
     Route: 048
     Dates: start: 20210612
  2. ENTRESTO [Suspect]
     Active Substance: SACUBITRIL\VALSARTAN
     Dosage: UNK, BID (24/26 MG)
     Route: 048
     Dates: start: 202110

REACTIONS (8)
  - COVID-19 [Unknown]
  - Pulmonary oedema [Unknown]
  - Alopecia [Unknown]
  - Memory impairment [Unknown]
  - Dry mouth [Unknown]
  - Dry eye [Unknown]
  - Abnormal loss of weight [Unknown]
  - Arthralgia [Unknown]

NARRATIVE: CASE EVENT DATE: 20220101
